FAERS Safety Report 18053546 (Version 1)
Quarter: 2020Q3

REPORT INFORMATION
  Report Type: Spontaneous
  Country: US (occurrence: US)
  Receive Date: 20200721
  Receipt Date: 20200721
  Transmission Date: 20201103
  Serious: No
  Sender: FDA-Public Use
  Company Number: None

PATIENT
  Age: 86 Year
  Sex: Male
  Weight: 74.25 kg

DRUGS (20)
  1. AMARYL [Concomitant]
     Active Substance: GLIMEPIRIDE
  2. ROSUVASTATIN. [Concomitant]
     Active Substance: ROSUVASTATIN
  3. OXYCODONE [Concomitant]
     Active Substance: OXYCODONE
  4. ASPIRIN 81 [Concomitant]
     Active Substance: ASPIRIN
  5. PANTOPRAZOLE [Concomitant]
     Active Substance: PANTOPRAZOLE
  6. MENS 50+ MULTI VITAMIN [Concomitant]
  7. GABAPENTIN. [Concomitant]
     Active Substance: GABAPENTIN
  8. ONDANSETRON [Concomitant]
     Active Substance: ONDANSETRON
  9. VITAMIN D [Concomitant]
     Active Substance: VITAMIN D NOS
  10. CAPECITABINE. [Suspect]
     Active Substance: CAPECITABINE
     Indication: NEOPLASM MALIGNANT
     Route: 048
     Dates: start: 20200325, end: 20200721
  11. CLONAZEPAM. [Concomitant]
     Active Substance: CLONAZEPAM
  12. CARDURA [Concomitant]
     Active Substance: DOXAZOSIN MESYLATE
  13. ANORO ELLIPTA [Concomitant]
     Active Substance: UMECLIDINIUM BROMIDE\VILANTEROL TRIFENATATE
  14. FUROSEMIDE. [Concomitant]
     Active Substance: FUROSEMIDE
  15. DURAGESIC [Concomitant]
     Active Substance: FENTANYL
  16. IRON [Concomitant]
     Active Substance: IRON
  17. COLACE [Concomitant]
     Active Substance: DOCUSATE SODIUM
  18. CARDIZE CD [Concomitant]
  19. DULOXETINE. [Concomitant]
     Active Substance: DULOXETINE
  20. MECLIZINE [Concomitant]
     Active Substance: MECLIZINE HYDROCHLORIDE

REACTIONS (1)
  - Hospice care [None]

NARRATIVE: CASE EVENT DATE: 20200721
